FAERS Safety Report 21581392 (Version 1)
Quarter: 2022Q4

REPORT INFORMATION
  Report Type: Report from Study
  Country: PT (occurrence: PT)
  Receive Date: 20221111
  Receipt Date: 20221111
  Transmission Date: 20230113
  Serious: Yes (Hospitalization)
  Sender: FDA-Public Use
  Company Number: PT-ABBVIE-4194992

PATIENT
  Age: 67 Year
  Sex: Female

DRUGS (5)
  1. SKYRIZI [Suspect]
     Active Substance: RISANKIZUMAB-RZAA
     Indication: Psoriasis
     Dosage: STRENGTH 150 MILLIGRAM  LOADING DOSE 2
     Route: 058
     Dates: start: 20211209, end: 20211209
  2. SKYRIZI [Suspect]
     Active Substance: RISANKIZUMAB-RZAA
     Dosage: STRENGTH 150 MILLIGRAM  LOADING DOSE 1
     Route: 058
     Dates: start: 20211111, end: 20211111
  3. SKYRIZI [Suspect]
     Active Substance: RISANKIZUMAB-RZAA
     Dosage: STRENGTH 150 MILLIGRAM
     Route: 058
     Dates: start: 20220303
  4. SIMVASTATIN [Concomitant]
     Active Substance: SIMVASTATIN
     Indication: Blood cholesterol increased
     Dosage: BEFORE SKYRIZI
     Route: 048
  5. LOSARTAN [Concomitant]
     Active Substance: LOSARTAN
     Indication: Hypertension
     Dosage: BEFORE SKYRIZI
     Route: 048

REACTIONS (4)
  - Paraesthesia [Recovered/Resolved]
  - Hypoacusis [Recovered/Resolved]
  - Loss of consciousness [Recovered/Resolved]
  - Transient ischaemic attack [Recovered/Resolved]

NARRATIVE: CASE EVENT DATE: 20221014
